FAERS Safety Report 8033090-8 (Version None)
Quarter: 2012Q1

REPORT INFORMATION
  Report Type: 
  Country: None (occurrence: None)
  Receive Date: 20120110
  Receipt Date: 20120105
  Transmission Date: 20120608
  Serious: Yes (Other)
  Sender: FDA-Public Use
  Company Number: US-SANOFI-AVENTIS-2012SA000940

PATIENT
  Sex: Male

DRUGS (3)
  1. METFORMIN HCL [Concomitant]
  2. SOLOSTAR [Suspect]
     Dates: start: 20110101
  3. LANTUS [Suspect]
     Dosage: 15 UNITS IN THE MORNING, 10-15 AT NIGHT
     Route: 058
     Dates: start: 20110101

REACTIONS (3)
  - BLOOD GLUCOSE INCREASED [None]
  - SINUSITIS [None]
  - PNEUMONIA [None]
